FAERS Safety Report 9377545 (Version 1)
Quarter: 2013Q3

REPORT INFORMATION
  Report Type: Spontaneous
  Country: US (occurrence: US)
  Receive Date: 20130701
  Receipt Date: 20130701
  Transmission Date: 20140515
  Serious: Yes (Life-Threatening, Hospitalization)
  Sender: FDA-Public Use
  Company Number: US-ELI_LILLY_AND_COMPANY-US201306007336

PATIENT
  Sex: Male

DRUGS (4)
  1. HUMALOG LISPRO [Suspect]
     Indication: TYPE 1 DIABETES MELLITUS
     Dosage: UNK, PRN
  2. HUMALOG LISPRO [Suspect]
     Indication: TYPE 1 DIABETES MELLITUS
     Dosage: UNK, PRN
  3. LANTUS [Concomitant]
     Dosage: 50 U, BID
  4. METFORMIN                          /00082702/ [Concomitant]

REACTIONS (4)
  - Asthma [Recovered/Resolved]
  - Shock hypoglycaemic [Recovered/Resolved]
  - Fall [Recovered/Resolved]
  - Rib fracture [Unknown]
